FAERS Safety Report 10660784 (Version 4)
Quarter: 2015Q1

REPORT INFORMATION
  Report Type: Report from Study
  Country: IT (occurrence: IT)
  Receive Date: 20141217
  Receipt Date: 20150212
  Transmission Date: 20150720
  Serious: Yes (Hospitalization)
  Sender: FDA-Public Use
  Company Number: IT-009507513-1412ITA005394

PATIENT
  Age: 53 Year
  Sex: Male
  Weight: 57 kg

DRUGS (9)
  1. DOBETIN [Concomitant]
     Active Substance: CYANOCOBALAMIN
     Indication: ROUTINE HEALTH MAINTENANCE
     Dosage: TOTAL DAILY DOSE: 1000U
     Route: 048
     Dates: start: 20141010, end: 20141215
  2. FOLINA (FOLIC ACID) [Concomitant]
     Active Substance: FOLIC ACID
     Indication: ROUTINE HEALTH MAINTENANCE
     Dosage: TOTAL DAILY DOSE: 5 MG
     Route: 048
     Dates: start: 20141010, end: 20141215
  3. METHADONE HYDROCHLORIDE. [Concomitant]
     Active Substance: METHADONE HYDROCHLORIDE
     Indication: DRUG DEPENDENCE
     Dosage: TOTAL DAILY DOSE: 20 MG
     Route: 048
     Dates: start: 20140103
  4. PANTORC [Concomitant]
     Active Substance: PANTOPRAZOLE SODIUM
     Indication: PROPHYLAXIS
     Dosage: TOTAL DAILY DOSE: 20 MG
     Route: 048
     Dates: end: 20141207
  5. ALCOVER [Concomitant]
     Active Substance: SODIUM OXYBATE
     Indication: ALCOHOLISM
     Dosage: TOTAL DAILY DOSE: 22.5 MG
     Route: 048
     Dates: start: 20140103
  6. ALCOVER [Concomitant]
     Active Substance: SODIUM OXYBATE
     Indication: ALCOHOL DETOXIFICATION
  7. RIBAVIRIN. [Suspect]
     Active Substance: RIBAVIRIN
     Indication: CHRONIC HEPATITIS C
     Dosage: STRENGHT 200 MG, 600 MG, QD
     Route: 048
     Dates: start: 20140912, end: 20141207
  8. PEGASYS [Suspect]
     Active Substance: PEGINTERFERON ALFA-2A
     Indication: CHRONIC HEPATITIS C
     Dosage: 135 MICROGRAM, QW
     Route: 058
     Dates: start: 20140912, end: 20141205
  9. BOCEPREVIR [Suspect]
     Active Substance: BOCEPREVIR
     Indication: CHRONIC HEPATITIS C
     Dosage: STRENGTH 200MG, TOTAL DAILY DOSE: 2400 MG, QD
     Route: 048
     Dates: start: 20141010, end: 20141207

REACTIONS (1)
  - Neutropenia [Recovered/Resolved]

NARRATIVE: CASE EVENT DATE: 20141205
